FAERS Safety Report 9165650 (Version 1)
Quarter: 2013Q1

REPORT INFORMATION
  Report Type: Report from Study
  Country: BR (occurrence: BR)
  Receive Date: 20130315
  Receipt Date: 20130315
  Transmission Date: 20140127
  Serious: Yes (Other)
  Sender: FDA-Public Use
  Company Number: BR-ROCHE-1202207

PATIENT
  Sex: Male
  Weight: 100 kg

DRUGS (2)
  1. ROACUTAN [Suspect]
     Indication: ACNE
     Dosage: 0.6 MG/KG
     Route: 065
     Dates: start: 200505, end: 200601
  2. ROACUTAN [Suspect]
     Dosage: DOSE REDUCED
     Route: 065
     Dates: start: 200601, end: 20060228

REACTIONS (1)
  - Weight increased [Unknown]
